FAERS Safety Report 5736146-5 (Version None)
Quarter: 2008Q2

REPORT INFORMATION
  Report Type: 
  Country: None (occurrence: None)
  Receive Date: 20080513
  Receipt Date: 20080513
  Transmission Date: 20081010
  Serious: Yes (Other)
  Sender: FDA-Public Use
  Company Number: A0727577A

PATIENT
  Age: 25 Year
  Sex: Female
  Weight: 125.9 kg

DRUGS (4)
  1. ALLI [Suspect]
     Indication: WEIGHT LOSS DIET
     Route: 048
     Dates: start: 20080501
  2. CITALOPRAM HYDROBROMIDE [Concomitant]
  3. ATENOLOL [Concomitant]
  4. MULTI-VITAMIN [Concomitant]

REACTIONS (3)
  - ANAL HAEMORRHAGE [None]
  - DIARRHOEA [None]
  - RECTAL DISCHARGE [None]
